FAERS Safety Report 20185254 (Version 1)
Quarter: 2021Q4

REPORT INFORMATION
  Report Type: Spontaneous
  Country: JP (occurrence: JP)
  Receive Date: 20211215
  Receipt Date: 20211215
  Transmission Date: 20220303
  Serious: Yes (Hospitalization, Other)
  Sender: FDA-Public Use
  Company Number: JP-NOVARTISPH-NVSJ2021JP016771

PATIENT
  Age: 19 Year
  Sex: Female
  Weight: 50 kg

DRUGS (2)
  1. GILENYA [Suspect]
     Active Substance: FINGOLIMOD HYDROCHLORIDE
     Indication: Multiple sclerosis
     Dosage: 0.5 MG/DAY, ALTERNATE-DAY ADMINISTRATION
     Route: 048
     Dates: start: 202104, end: 202107
  2. METHYLCOBALAMIN [Concomitant]
     Active Substance: METHYLCOBALAMIN
     Indication: Product used for unknown indication
     Dosage: UNK
     Route: 048

REACTIONS (3)
  - Bradycardia [Recovered/Resolved]
  - Hepatic function abnormal [Recovered/Resolved]
  - Product use issue [Recovered/Resolved]

NARRATIVE: CASE EVENT DATE: 20210401
